FAERS Safety Report 8393609-4 (Version None)
Quarter: 2012Q2

REPORT INFORMATION
  Report Type: 
  Country: None (occurrence: None)
  Receive Date: 20120530
  Receipt Date: 20120522
  Transmission Date: 20120825
  Serious: Yes (Hospitalization, Other)
  Sender: FDA-Public Use
  Company Number: DE-BIOGENIDEC-2011BI021192

PATIENT
  Age: 49 Year
  Sex: Female
  Weight: 60 kg

DRUGS (4)
  1. TYSABRI [Suspect]
     Indication: MULTIPLE SCLEROSIS
     Route: 042
     Dates: start: 20080328, end: 20100615
  2. ENOXAPARIN SODIUM [Concomitant]
     Route: 058
     Dates: start: 20100714
  3. PAROXETINE [Concomitant]
     Dates: start: 20100101
  4. ZOPICLONE [Concomitant]
     Dates: start: 20070101

REACTIONS (1)
  - OVARIAN CANCER [None]
